FAERS Safety Report 23315863 (Version 4)
Quarter: 2024Q1

REPORT INFORMATION
  Report Type: Report from Study
  Country: CN (occurrence: CN)
  Receive Date: 20231219
  Receipt Date: 20240117
  Transmission Date: 20240409
  Serious: No
  Sender: FDA-Public Use
  Company Number: CN-PFIZER INC-PV202300202905

PATIENT
  Age: 86 Year
  Sex: Female

DRUGS (74)
  1. NIRMATRELVIR\RITONAVIR [Suspect]
     Active Substance: NIRMATRELVIR\RITONAVIR
     Indication: COVID-19
     Dosage: UNK, 2X/DAY
     Route: 048
     Dates: start: 20220428, end: 20220503
  2. NIRMATRELVIR\RITONAVIR [Suspect]
     Active Substance: NIRMATRELVIR\RITONAVIR
     Dosage: [RITONAVIR 100 MG]/[NIRMATRELVIR 300 MG], 2X/DAY
     Route: 048
     Dates: start: 20220508, end: 20220513
  3. NIRMATRELVIR\RITONAVIR [Suspect]
     Active Substance: NIRMATRELVIR\RITONAVIR
     Dosage: [RITONAVIR 100 MG]/[NIRMATRELVIR 300 MG], 2X/DAY
     Route: 048
     Dates: start: 20220516, end: 20220521
  4. PRAVASTATIN [Concomitant]
     Active Substance: PRAVASTATIN
     Indication: Lipids increased
     Dosage: UNK
     Route: 048
     Dates: start: 20220425, end: 20220521
  5. FELODIPINE [Concomitant]
     Active Substance: FELODIPINE
     Dosage: SUSTAINED-RELEASE
     Route: 048
     Dates: start: 20220425, end: 20220521
  6. CLOPIDOGREL [Concomitant]
     Active Substance: CLOPIDOGREL BISULFATE
     Indication: Antiplatelet therapy
     Dosage: UNK
     Route: 048
     Dates: start: 20220425, end: 20220505
  7. BISOPROLOL [Concomitant]
     Active Substance: BISOPROLOL\BISOPROLOL FUMARATE
     Indication: Heart rate abnormal
     Dosage: UNK
     Route: 048
     Dates: start: 20220425, end: 20220521
  8. LEVOTHYROXINE [Concomitant]
     Active Substance: LEVOTHYROXINE\LEVOTHYROXINE SODIUM
     Indication: Hormone therapy
     Dosage: UNK
     Route: 048
     Dates: start: 20220425, end: 20220521
  9. AMINOPHYLLINE\CHLORPHENIRAMINE MALEATE\METHOXYPHENAMINE HYDROCHLORIDE\ [Concomitant]
     Active Substance: AMINOPHYLLINE\CHLORPHENIRAMINE MALEATE\METHOXYPHENAMINE HYDROCHLORIDE\NOSCAPINE
     Dosage: UNK
     Route: 048
     Dates: start: 20220425, end: 20220428
  10. MOSAPRIDE CITRATE [Concomitant]
     Active Substance: MOSAPRIDE CITRATE
     Indication: Gastric hypomotility
     Dosage: UNK
     Route: 048
     Dates: start: 20220425, end: 20220508
  11. VALSARTAN [Concomitant]
     Active Substance: VALSARTAN
     Dosage: UNK
     Route: 048
     Dates: start: 20220425, end: 20220521
  12. OXYGEN [Concomitant]
     Active Substance: OXYGEN
     Indication: Hypoxia
     Dosage: NASAL
     Route: 055
     Dates: start: 20220425, end: 20220508
  13. BUDESONIDE [Concomitant]
     Active Substance: BUDESONIDE
     Dosage: SUSPENSION FOR INHALATION
     Dates: start: 20220425, end: 20220427
  14. BUDESONIDE [Concomitant]
     Active Substance: BUDESONIDE
     Dosage: SUSPENSION FOR INHALATION
     Dates: start: 20220427, end: 20220503
  15. POTASSIUM CHLORIDE [Concomitant]
     Active Substance: POTASSIUM CHLORIDE
     Indication: Blood potassium abnormal
     Dosage: SUSTAINED-RELEASE
     Route: 048
     Dates: start: 20220426, end: 20220426
  16. POTASSIUM CHLORIDE [Concomitant]
     Active Substance: POTASSIUM CHLORIDE
     Dosage: SUSTAINED-RELEASE
     Route: 048
     Dates: start: 20220426, end: 20220502
  17. CHYMOTRYPSIN [Concomitant]
     Active Substance: CHYMOTRYPSIN
     Indication: Productive cough
     Dosage: INHALATION
     Dates: start: 20220427, end: 20220503
  18. CHYMOTRYPSIN [Concomitant]
     Active Substance: CHYMOTRYPSIN
     Dosage: INHALATION
     Dates: start: 20220503, end: 20220508
  19. IPRATROPIUM BROMIDE [Concomitant]
     Active Substance: IPRATROPIUM BROMIDE\IPRATROPIUM BROMIDE ANHYDROUS
     Dosage: SOLUTION FOR INHALATION
     Dates: start: 20220427, end: 20220503
  20. IPRATROPIUM BROMIDE [Concomitant]
     Active Substance: IPRATROPIUM BROMIDE\IPRATROPIUM BROMIDE ANHYDROUS
     Dosage: SOLUTION FOR INHALATION
     Dates: start: 20220503, end: 20220508
  21. MOXIFLOXACIN HYDROCHLORIDE [Concomitant]
     Active Substance: MOXIFLOXACIN HYDROCHLORIDE\MOXIFLOXACIN HYDROCHLORIDE MONOHYDRATE
     Indication: Infection prophylaxis
     Dosage: UNK
     Route: 042
     Dates: start: 20220428, end: 20220428
  22. MOXIFLOXACIN HYDROCHLORIDE [Concomitant]
     Active Substance: MOXIFLOXACIN HYDROCHLORIDE\MOXIFLOXACIN HYDROCHLORIDE MONOHYDRATE
     Dosage: UNK
     Route: 042
     Dates: start: 20220428, end: 20220505
  23. AMINO ACIDS, SOURCE UNSPECIFIED [Concomitant]
     Active Substance: AMINO ACIDS, SOURCE UNSPECIFIED
     Indication: Nutritional supplementation
     Dosage: UNK
     Route: 042
     Dates: start: 20220430, end: 20220430
  24. AMINO ACIDS, SOURCE UNSPECIFIED [Concomitant]
     Active Substance: AMINO ACIDS, SOURCE UNSPECIFIED
     Dosage: UNK
     Route: 042
     Dates: start: 20220430, end: 20220501
  25. CEFEPIME HYDROCHLORIDE [Concomitant]
     Active Substance: CEFEPIME HYDROCHLORIDE
     Indication: Infection prophylaxis
     Dosage: UNK
     Route: 042
     Dates: start: 20220502, end: 20220502
  26. CEFEPIME HYDROCHLORIDE [Concomitant]
     Active Substance: CEFEPIME HYDROCHLORIDE
     Dosage: UNK
     Route: 042
     Dates: start: 20220502, end: 20220508
  27. ENTERAL NUTRITIONAL SUSPENSION (TPF) [Concomitant]
     Indication: Nutritional supplementation
     Dosage: NASOGASTRIC
     Dates: start: 20220502, end: 20220502
  28. ENTERAL NUTRITIONAL SUSPENSION (TPF) [Concomitant]
     Dosage: UNK
     Route: 048
     Dates: start: 20220502, end: 20220502
  29. ENTERAL NUTRITIONAL SUSPENSION (TPF) [Concomitant]
     Dosage: NASOGASTRIC
     Route: 048
     Dates: start: 20220508, end: 20220508
  30. ENTERAL NUTRITIONAL SUSPENSION (TPF) [Concomitant]
     Dosage: NASOGASTRIC
     Route: 048
     Dates: start: 20220508, end: 20220511
  31. ENTERAL NUTRITIONAL SUSPENSION (TPF) [Concomitant]
     Dosage: NASOGASTRIC
     Route: 048
     Dates: start: 20220510, end: 20220511
  32. ENTERAL NUTRITIONAL SUSPENSION (TPF) [Concomitant]
     Dosage: NASOGASTRIC
     Route: 048
     Dates: start: 20220511, end: 20220521
  33. OMEPRAZOLE SODIUM [Concomitant]
     Active Substance: OMEPRAZOLE SODIUM
     Indication: Prophylaxis
     Dosage: UNK
     Route: 042
     Dates: start: 20220505, end: 20220505
  34. OMEPRAZOLE SODIUM [Concomitant]
     Active Substance: OMEPRAZOLE SODIUM
     Dosage: UNK
     Route: 042
     Dates: start: 20220505, end: 20220506
  35. VITAMINS [Concomitant]
     Active Substance: VITAMINS
     Indication: Nutritional supplementation
     Dosage: UNK
     Route: 042
     Dates: start: 20220505, end: 20220505
  36. VITAMINS [Concomitant]
     Active Substance: VITAMINS
     Dosage: UNK
     Route: 042
     Dates: start: 20220505, end: 20220506
  37. INSULIN HUMAN [Concomitant]
     Active Substance: INSULIN HUMAN
     Indication: Nutritional supplementation
     Dosage: UNK
     Route: 042
     Dates: start: 20220502, end: 20220502
  38. INSULIN HUMAN [Concomitant]
     Active Substance: INSULIN HUMAN
     Dosage: UNK
     Route: 042
     Dates: start: 20220503, end: 20220503
  39. INSULIN HUMAN [Concomitant]
     Active Substance: INSULIN HUMAN
     Dosage: UNK
     Route: 042
     Dates: start: 20220505, end: 20220505
  40. INSULIN HUMAN [Concomitant]
     Active Substance: INSULIN HUMAN
     Dosage: UNK
     Route: 042
     Dates: start: 20220506, end: 20220506
  41. INSULIN HUMAN [Concomitant]
     Active Substance: INSULIN HUMAN
     Dosage: UNK
     Route: 042
     Dates: start: 20220505, end: 20220508
  42. INSULIN HUMAN [Concomitant]
     Active Substance: INSULIN HUMAN
     Dosage: UNK
     Route: 042
     Dates: start: 20220506, end: 20220508
  43. INSULIN HUMAN [Concomitant]
     Active Substance: INSULIN HUMAN
     Dosage: UNK
     Route: 042
     Dates: start: 20220508, end: 20220509
  44. NADROPARIN CALCIUM [Concomitant]
     Active Substance: NADROPARIN CALCIUM
     Indication: Anticoagulant therapy
     Dosage: UNK
     Route: 058
     Dates: start: 20220502, end: 20220502
  45. NADROPARIN CALCIUM [Concomitant]
     Active Substance: NADROPARIN CALCIUM
     Dosage: UNK
     Route: 058
     Dates: start: 20220502, end: 20220505
  46. VITAMIN C [Concomitant]
     Active Substance: ASCORBIC ACID
     Indication: Nutritional supplementation
     Dosage: UNK
     Route: 042
     Dates: start: 20220505, end: 20220506
  47. VITAMIN C [Concomitant]
     Active Substance: ASCORBIC ACID
     Dosage: UNK
     Route: 042
     Dates: start: 20220506, end: 20220509
  48. POTASSIUM CHLORIDE [Concomitant]
     Active Substance: POTASSIUM CHLORIDE
     Indication: Nutritional supplementation
     Dosage: UNK
     Route: 042
     Dates: start: 20220505, end: 20220506
  49. POTASSIUM CHLORIDE [Concomitant]
     Active Substance: POTASSIUM CHLORIDE
     Dosage: UNK
     Route: 042
     Dates: start: 20220506, end: 20220508
  50. POTASSIUM CHLORIDE [Concomitant]
     Active Substance: POTASSIUM CHLORIDE
     Dosage: UNK
     Route: 042
     Dates: start: 20220506, end: 20220508
  51. DEXTROSE [Concomitant]
     Active Substance: DEXTROSE\DEXTROSE MONOHYDRATE
     Indication: Nutritional supplementation
     Dosage: 50%
     Route: 042
     Dates: start: 20220506, end: 20220508
  52. VITAMIN B6 [Concomitant]
     Active Substance: PYRIDOXINE HYDROCHLORIDE
     Indication: Nutritional supplementation
     Dosage: UNK
     Route: 042
     Dates: start: 20220505, end: 20220505
  53. VITAMIN B6 [Concomitant]
     Active Substance: PYRIDOXINE HYDROCHLORIDE
     Dosage: UNK
     Route: 042
     Dates: start: 20220506, end: 20220508
  54. BEMIPARIN SODIUM [Concomitant]
     Active Substance: BEMIPARIN SODIUM
     Indication: Anticoagulant therapy
     Dosage: UNK
     Route: 058
     Dates: start: 20220508, end: 20220509
  55. THYMALFASIN [Concomitant]
     Active Substance: THYMALFASIN
     Indication: Immunosuppression
     Dosage: UNK
     Route: 058
     Dates: start: 20220508, end: 20220511
  56. THYMALFASIN [Concomitant]
     Active Substance: THYMALFASIN
     Dosage: UNK
     Route: 058
     Dates: start: 20220511, end: 20220521
  57. TAN RE QING [Concomitant]
     Indication: Detoxification
     Dosage: UNK
     Route: 042
     Dates: start: 20220508, end: 20220508
  58. TAN RE QING [Concomitant]
     Dosage: UNK
     Route: 042
     Dates: start: 20220508, end: 20220510
  59. ANDROGRAPHOLIDE [Concomitant]
     Active Substance: ANDROGRAPHOLIDE
     Indication: Antiinflammatory therapy
     Dosage: UNK
     Route: 042
     Dates: start: 20220508, end: 20220508
  60. ANDROGRAPHOLIDE [Concomitant]
     Active Substance: ANDROGRAPHOLIDE
     Indication: Detoxification
  61. ESOMEPRAZOLE SODIUM [Concomitant]
     Active Substance: ESOMEPRAZOLE SODIUM
     Indication: Prophylaxis
     Dosage: UNK
     Route: 042
     Dates: start: 20220508, end: 20220515
  62. ESOMEPRAZOLE SODIUM [Concomitant]
     Active Substance: ESOMEPRAZOLE SODIUM
     Dosage: NASOGASTRIC
     Dates: start: 20220515, end: 20220521
  63. SODIUM CHLORIDE [Concomitant]
     Active Substance: SODIUM CHLORIDE
     Indication: Blood electrolytes decreased
     Dosage: UNK
     Route: 048
     Dates: start: 20220509, end: 20220511
  64. SODIUM CHLORIDE [Concomitant]
     Active Substance: SODIUM CHLORIDE
     Dosage: NASOGASTRIC
     Dates: start: 20220510, end: 20220512
  65. SODIUM CHLORIDE [Concomitant]
     Active Substance: SODIUM CHLORIDE
     Dosage: NASOGASTRIC
     Dates: start: 20220511, end: 20220514
  66. SODIUM CHLORIDE [Concomitant]
     Active Substance: SODIUM CHLORIDE
     Dosage: UNK
     Route: 048
     Dates: start: 20220520, end: 20220521
  67. SODIUM CHLORIDE [Concomitant]
     Active Substance: SODIUM CHLORIDE
     Dosage: UNK
     Route: 048
     Dates: start: 20220509, end: 20220509
  68. SODIUM CHLORIDE [Concomitant]
     Active Substance: SODIUM CHLORIDE
     Dosage: NASOGASTRIC
     Dates: start: 20220510, end: 20220510
  69. SODIUM CHLORIDE [Concomitant]
     Active Substance: SODIUM CHLORIDE
     Dosage: UNK
     Route: 048
     Dates: start: 20220520, end: 20220520
  70. ENOXAPARIN SODIUM [Concomitant]
     Active Substance: ENOXAPARIN SODIUM
     Indication: Anticoagulant therapy
     Dosage: UNK
     Route: 058
     Dates: start: 20220509, end: 20220521
  71. CALCIUM GLUCONATE [Concomitant]
     Active Substance: CALCIUM GLUCONATE
     Indication: Electrolyte imbalance
     Dosage: UNK
     Route: 042
     Dates: start: 20220503, end: 20220503
  72. CALCIUM GLUCONATE [Concomitant]
     Active Substance: CALCIUM GLUCONATE
     Dosage: UNK
     Route: 042
     Dates: start: 20220516, end: 20220516
  73. CALCIUM GLUCONATE [Concomitant]
     Active Substance: CALCIUM GLUCONATE
     Dosage: UNK
     Route: 042
     Dates: start: 20220516, end: 20220521
  74. FUROSEMIDE [Concomitant]
     Active Substance: FUROSEMIDE
     Indication: Polyuria
     Dosage: UNK
     Route: 042
     Dates: start: 20220503, end: 20220503

REACTIONS (1)
  - Overdose [Unknown]
